FAERS Safety Report 17630036 (Version 1)
Quarter: 2020Q2

REPORT INFORMATION
  Report Type: Spontaneous
  Country: US (occurrence: US)
  Receive Date: 20200403
  Receipt Date: 20200403
  Transmission Date: 20200713
  Serious: Yes (Other)
  Sender: FDA-Public Use
  Company Number: None

PATIENT
  Age: 78 Year
  Sex: Female
  Weight: 51.75 kg

DRUGS (5)
  1. LETROZOLE. [Concomitant]
     Active Substance: LETROZOLE
  2. RANITIDINE. [Concomitant]
     Active Substance: RANITIDINE
  3. IBRANCE [Suspect]
     Active Substance: PALBOCICLIB
     Indication: BREAST CANCER
     Route: 048
     Dates: start: 20190823
  4. ONDANSETRON [Concomitant]
     Active Substance: ONDANSETRON
  5. MORPHINE [Concomitant]
     Active Substance: MORPHINE

REACTIONS (1)
  - Disease progression [None]
